FAERS Safety Report 9449833 (Version 2)
Quarter: 2013Q4

REPORT INFORMATION
  Report Type: Report from Study
  Country: US (occurrence: US)
  Receive Date: 20130809
  Receipt Date: 20131114
  Transmission Date: 20140711
  Serious: Yes (Death)
  Sender: FDA-Public Use
  Company Number: PHEH2013US016829

PATIENT
  Age: 80 Year
  Sex: Male

DRUGS (1)
  1. EXELON PATCH [Suspect]
     Indication: DEMENTIA ALZHEIMER^S TYPE
     Dosage: 4.6 MG, DAILY
     Route: 062
     Dates: start: 20121201, end: 20130201

REACTIONS (2)
  - Death [Fatal]
  - Gastrointestinal disorder [Unknown]
